FAERS Safety Report 10144960 (Version 5)
Quarter: 2014Q2

REPORT INFORMATION
  Report Type: Spontaneous
  Country: US (occurrence: US)
  Receive Date: 20140430
  Receipt Date: 20140523
  Transmission Date: 20141212
  Serious: Yes (Other)
  Sender: FDA-Public Use
  Company Number: US-009507513-1404USA013752

PATIENT
  Age: 61 Year
  Sex: Male
  Weight: 79.82 kg

DRUGS (6)
  1. JANUMET XR [Suspect]
     Indication: DIABETES MELLITUS
     Dosage: 100/2000(UNIT UNKNOWN) DAILY
     Route: 048
     Dates: end: 2013
  2. LEVEMIR [Concomitant]
     Indication: TYPE 2 DIABETES MELLITUS
     Dosage: 50 UNIT DAILY
     Route: 058
  3. METFORMIN [Concomitant]
     Dosage: 2000MG DAILY
     Route: 048
  4. RAMIPRIL [Concomitant]
     Dosage: 10MG DAILY
     Route: 048
  5. PRAVASTATIN SODIUM [Concomitant]
     Dosage: 80MG DAILY
     Route: 048
  6. TRILIPIX [Concomitant]
     Dosage: 135MG DAILY
     Route: 048

REACTIONS (3)
  - Thyroid cancer [Recovering/Resolving]
  - Tinnitus [Recovered/Resolved]
  - Expired product administered [Unknown]
